FAERS Safety Report 5050047-X (Version None)
Quarter: 2006Q2

REPORT INFORMATION
  Report Type: 
  Country: None (occurrence: None)
  Receive Date: 20060601
  Receipt Date: 20060215
  Transmission Date: 20061013
  Serious: No
  Sender: FDA-Public Use
  Company Number: US200602003321

PATIENT
  Age: 24 Year
  Sex: Female

DRUGS (1)
  1. CYMBALTA [Suspect]
     Indication: BIPOLAR DISORDER
     Dosage: 60 MG, ORAL
     Route: 048
     Dates: start: 20050124, end: 20060201

REACTIONS (2)
  - DEPRESSION [None]
  - DRUG EXPOSURE DURING PREGNANCY [None]
